FAERS Safety Report 4322379-1 (Version None)
Quarter: 2004Q1

REPORT INFORMATION
  Report Type: 
  Country: None (occurrence: None)
  Receive Date: 20040319
  Receipt Date: 20040312
  Transmission Date: 20041129
  Serious: Yes (Hospitalization)
  Sender: FDA-Public Use
  Company Number: F01200400437

PATIENT
  Age: 74 Year
  Sex: Female

DRUGS (4)
  1. (FONDAPARINUX SODIUM)  - SOLUTION - UNIT DOSE : UNKNOWN [Suspect]
     Indication: ORTHOPEDIC PROCEDURE
     Dosage: 2.5 MG SUBCUTANEOUS
     Route: 058
     Dates: start: 20040122, end: 20040213
  2. ISOKET (ISOSORBIDE DINITRATE) [Concomitant]
  3. CEFUROXIME [Concomitant]
  4. VIOXX [Concomitant]

REACTIONS (2)
  - HAEMARTHROSIS [None]
  - JOINT EFFUSION [None]
